FAERS Safety Report 6876862-5 (Version None)
Quarter: 2010Q3

REPORT INFORMATION
  Report Type: 
  Country: None (occurrence: None)
  Receive Date: 20100727
  Receipt Date: 20100721
  Transmission Date: 20110219
  Serious: Yes (Other)
  Sender: FDA-Public Use
  Company Number: BR-ROCHE-716663

PATIENT
  Sex: Male
  Weight: 104 kg

DRUGS (6)
  1. CLONAZEPAM [Suspect]
     Indication: PRODUCT USED FOR UNKNOWN INDICATION
     Dosage: DOSE: 1.5 TAB/DAY
     Route: 048
     Dates: start: 20100601, end: 20100101
  2. CLONAZEPAM [Interacting]
     Dosage: DOSE: 1 TAB/DAY
     Route: 048
     Dates: start: 20100101, end: 20100101
  3. CLONAZEPAM [Interacting]
     Dosage: DOSE: 0.5 TAB/DAY
     Route: 048
     Dates: start: 20100101, end: 20100720
  4. SIMVASTATIN [Interacting]
     Indication: PRODUCT USED FOR UNKNOWN INDICATION
     Dosage: DOSE: 1 TAB/DAY
     Route: 065
     Dates: start: 20100601
  5. COUMADIN [Concomitant]
     Dosage: DOSE: 3 TAB/DAY
     Dates: start: 20100513
  6. METFORMIN HCL [Concomitant]
     Dosage: DOSE: 3 TAB/DAY
     Dates: start: 20100605

REACTIONS (12)
  - BALANCE DISORDER [None]
  - CEREBROVASCULAR ACCIDENT [None]
  - DEPRESSION [None]
  - DRUG ADMINISTRATION ERROR [None]
  - DRUG INTERACTION [None]
  - FATIGUE [None]
  - HEADACHE [None]
  - NAUSEA [None]
  - NECK PAIN [None]
  - NERVOUSNESS [None]
  - SOMNOLENCE [None]
  - VERTIGO [None]
